FAERS Safety Report 16704444 (Version 3)
Quarter: 2019Q4

REPORT INFORMATION
  Report Type: Report from Study
  Country: JP (occurrence: JP)
  Receive Date: 20190814
  Receipt Date: 20191108
  Transmission Date: 20200122
  Serious: Yes (Hospitalization, Other)
  Sender: FDA-Public Use
  Company Number: JP-ALLERGAN-1915999US

PATIENT
  Sex: Male

DRUGS (4)
  1. BOTULINUM TOXIN TYPE A - GENERAL (9060X) [Suspect]
     Active Substance: BOTULINUM TOXIN TYPE A
     Indication: MUSCLE SPASTICITY
     Dosage: 350 UNITS, SINGLE
     Route: 030
     Dates: start: 20190705, end: 20190705
  2. BOTULINUM TOXIN TYPE A - GENERAL (9060X) [Suspect]
     Active Substance: BOTULINUM TOXIN TYPE A
     Dosage: UNK, SINGLE
     Route: 030
     Dates: start: 20190119, end: 20190119
  3. BOTULINUM TOXIN TYPE A - GENERAL (9060X) [Suspect]
     Active Substance: BOTULINUM TOXIN TYPE A
     Dosage: UNK, SINGLE
     Route: 065
  4. BOTULINUM TOXIN TYPE A - GENERAL (9060X) [Suspect]
     Active Substance: BOTULINUM TOXIN TYPE A
     Dosage: UNK, SINGLE
     Route: 030
     Dates: start: 20190605, end: 20190605

REACTIONS (9)
  - Gait disturbance [Unknown]
  - Haemorrhage subcutaneous [Recovering/Resolving]
  - Injury [Recovering/Resolving]
  - Grip strength decreased [Unknown]
  - Muscular weakness [Unknown]
  - Traumatic haemorrhage [Unknown]
  - Inappropriate schedule of product administration [Unknown]
  - Brain contusion [Recovered/Resolved]
  - Fall [Recovered/Resolved]

NARRATIVE: CASE EVENT DATE: 2015
